FAERS Safety Report 8859028 (Version 1)
Quarter: 2012Q4

REPORT INFORMATION
  Report Type: 
  Country: DE (occurrence: DE)
  Receive Date: 20121024
  Receipt Date: 20121024
  Transmission Date: 20130627
  Serious: Yes (Hospitalization)
  Sender: FDA-Public Use
  Company Number: DE-PFIZER INC-2012258951

PATIENT
  Age: 56 Year
  Sex: Female
  Weight: 115 kg

DRUGS (11)
  1. GENOTROPIN [Suspect]
     Dosage: 0.6 mg, 7/wk
     Route: 058
     Dates: start: 20060415
  2. ASTHMA-SPRAY [Concomitant]
     Indication: BRONCHITIS CHRONIC
     Dosage: UNK
  3. HYDROCORTISONE [Concomitant]
     Indication: BLOOD CORTICOTROPHIN DECREASED
     Dosage: UNK
     Dates: start: 19990701
  4. ESTRADIOL VALERATE [Concomitant]
     Indication: BLOOD LUTEINISING HORMONE DECREASED
     Dosage: UNK
     Dates: start: 19990701
  5. ESTRADIOL VALERATE [Concomitant]
     Indication: BLOOD FOLLICLE STIMULATING HORMONE DECREASED
  6. ESTRADIOL VALERATE [Concomitant]
     Indication: HYPOGONADISM FEMALE
  7. LEVOTHYROXINE [Concomitant]
     Indication: BLOOD THYROID STIMULATING HORMONE DECREASED
     Dosage: UNK
     Dates: start: 19990701
  8. LEVOTHYROXINE [Concomitant]
     Indication: PRIMARY HYPOTHYROIDISM
  9. METFORMIN [Concomitant]
     Indication: ESSENTIAL HYPERTENSION
     Dosage: UNK
     Dates: start: 20021215
  10. DHEA [Concomitant]
     Indication: BLOOD CORTICOTROPHIN DECREASED
     Dosage: UNK
     Dates: start: 20060615
  11. ENALAPRIL MALEATE [Concomitant]
     Indication: ESSENTIAL HYPERTENSION
     Dosage: UNK
     Dates: start: 20020701

REACTIONS (1)
  - Blood growth hormone abnormal [Unknown]
